FAERS Safety Report 13775264 (Version 2)
Quarter: 2017Q3

REPORT INFORMATION
  Report Type: Spontaneous
  Country: BE (occurrence: BE)
  Receive Date: 20170721
  Receipt Date: 20170814
  Transmission Date: 20171127
  Serious: Yes (Hospitalization, Other)
  Sender: FDA-Public Use
  Company Number: BE-ACTELION-A-CH2017-152370

PATIENT
  Age: 57 Year
  Sex: Male

DRUGS (1)
  1. VELETRI [Suspect]
     Active Substance: EPOPROSTENOL
     Indication: PULMONARY ARTERIAL HYPERTENSION
     Dosage: 9 NG/KG, PER MIN
     Route: 042
     Dates: start: 20161010

REACTIONS (10)
  - Device related infection [Recovered/Resolved]
  - Blood culture positive [Recovered/Resolved]
  - Staphylococcus test positive [Recovered/Resolved]
  - Pseudomonas test positive [Recovered/Resolved]
  - Catheter placement [Unknown]
  - Catheter site infection [Recovered/Resolved]
  - Catheter site erythema [Recovered/Resolved]
  - Staphylococcal infection [Unknown]
  - Purulent discharge [Recovered/Resolved]
  - Bacteraemia [Recovered/Resolved]

NARRATIVE: CASE EVENT DATE: 20161115
